FAERS Safety Report 15688210 (Version 1)
Quarter: 2018Q4

REPORT INFORMATION
  Report Type: Report from Study
  Country: CA (occurrence: CA)
  Receive Date: 20181205
  Receipt Date: 20181205
  Transmission Date: 20190205
  Serious: Yes (Hospitalization, Other)
  Sender: FDA-Public Use
  Company Number: CA-TEVA-2018-CA-982191

PATIENT
  Age: 45 Year
  Sex: Female

DRUGS (5)
  1. OCREVUS [Interacting]
     Active Substance: OCRELIZUMAB
     Indication: RELAPSING-REMITTING MULTIPLE SCLEROSIS
     Route: 042
  2. MORPHINE [Interacting]
     Active Substance: MORPHINE
     Indication: PRODUCT USED FOR UNKNOWN INDICATION
     Route: 048
  3. EFFEXOR [Interacting]
     Active Substance: VENLAFAXINE HYDROCHLORIDE
     Route: 065
  4. LORAZEPAM. [Suspect]
     Active Substance: LORAZEPAM
     Indication: PRODUCT USED FOR UNKNOWN INDICATION
     Route: 065
  5. METHYLPREDNISOLONE SODIUM SUCCINATE. [Interacting]
     Active Substance: METHYLPREDNISOLONE SODIUM SUCCINATE
     Indication: PRODUCT USED FOR UNKNOWN INDICATION
     Route: 042

REACTIONS (6)
  - Overdose [Unknown]
  - Drug interaction [Unknown]
  - Ill-defined disorder [Unknown]
  - Fatigue [Unknown]
  - Back pain [Unknown]
  - Sciatica [Unknown]
